FAERS Safety Report 4349747-6 (Version None)
Quarter: 2004Q2

REPORT INFORMATION
  Report Type: 
  Country: None (occurrence: None)
  Receive Date: 20040429
  Receipt Date: 20040330
  Transmission Date: 20050107
  Serious: Yes (Hospitalization)
  Sender: FDA-Public Use
  Company Number: JP-BRISTOL-MYERS SQUIBB COMPANY-12552808

PATIENT
  Age: 41 Year
  Sex: Male

DRUGS (15)
  1. EFAVIRENZ CAPS [Suspect]
     Indication: HIV INFECTION
     Dosage: DOSE REDUCED 30-JUL-2003 TO 600 MG DAILY
     Route: 048
     Dates: start: 20030501
  2. STAVUDINE CAPS [Suspect]
     Indication: HIV INFECTION
     Route: 048
  3. PRAVASTATIN SODIUM [Suspect]
     Route: 048
  4. TRAZODONE HCL [Suspect]
     Dosage: 25-50 MG THREE TIMES DAILY, TOTAL DAILY DOSE 75-150 MG
     Route: 048
  5. LAMIVUDINE [Suspect]
     Indication: HIV INFECTION
     Route: 048
  6. CODEINE PHOSPHATE [Suspect]
     Route: 048
  7. OMEPRAZOLE [Suspect]
     Route: 048
  8. LOPERAMIDE HCL [Suspect]
     Dosage: CAPSULES
     Route: 048
  9. FLUNITRAZEPAM [Suspect]
     Route: 048
  10. PAROXETINE HCL [Suspect]
     Dosage: 10-50 MG BID
     Route: 048
  11. SODIUM ALGINATE [Suspect]
     Dosage: SYRUP
     Route: 048
  12. ETIZOLAM [Suspect]
     Route: 048
  13. EPINASTINE HCL [Suspect]
     Dosage: TABLETS
     Route: 048
  14. DICLOFENAC SODIUM [Suspect]
     Dosage: CAPSULE
     Route: 048
     Dates: end: 20030701
  15. VITAMIN A [Suspect]
     Dosage: TABLET

REACTIONS (2)
  - ADVERSE EVENT [None]
  - INCONTINENCE [None]
